FAERS Safety Report 21837008 (Version 1)
Quarter: 2023Q1

REPORT INFORMATION
  Report Type: Spontaneous
  Country: CN (occurrence: CN)
  Receive Date: 20230109
  Receipt Date: 20230109
  Transmission Date: 20230417
  Serious: Yes (Other)
  Sender: FDA-Public Use
  Company Number: CN-002147023-NVSC2023CN002537

PATIENT
  Age: 29 Year
  Sex: Female

DRUGS (3)
  1. EMEDASTINE DIFUMARATE [Suspect]
     Active Substance: EMEDASTINE DIFUMARATE
     Indication: Conjunctivitis allergic
     Dosage: 1 DRP, BID
     Route: 047
     Dates: start: 20221123, end: 20221223
  2. SODIUM HYALURONATE [Suspect]
     Active Substance: HYALURONATE SODIUM
     Indication: Conjunctivitis allergic
     Dosage: UNK
     Route: 065
     Dates: start: 20221123
  3. PEMIROLAST POTASSIUM [Suspect]
     Active Substance: PEMIROLAST POTASSIUM
     Indication: Conjunctivitis allergic
     Dosage: UNK
     Route: 065
     Dates: start: 20221123

REACTIONS (3)
  - Xerophthalmia [Recovered/Resolved]
  - Eye pain [Recovered/Resolved]
  - Conjunctivitis allergic [Recovered/Resolved]

NARRATIVE: CASE EVENT DATE: 20221123
